FAERS Safety Report 7397666-3 (Version None)
Quarter: 2011Q2

REPORT INFORMATION
  Report Type: 
  Country: None (occurrence: None)
  Receive Date: 20110406
  Receipt Date: 20110325
  Transmission Date: 20111010
  Serious: Yes (Other)
  Sender: FDA-Public Use
  Company Number: PHHY2011PL24420

PATIENT
  Sex: Female
  Weight: 68 kg

DRUGS (3)
  1. CEFUROXIME AXETIL [Suspect]
     Indication: UPPER RESPIRATORY TRACT INFLAMMATION
     Dosage: 500 MG, BID
     Route: 048
     Dates: start: 20110324, end: 20110324
  2. LAKCID [Concomitant]
     Indication: UPPER RESPIRATORY TRACT INFLAMMATION
     Dosage: 1 DF, QD
  3. NEO-ANGIN N (AMYLMETACRESOL/MENTHOL/DICHLOROBENZYL ALCOHOL) [Concomitant]
     Indication: UPPER RESPIRATORY TRACT INFLAMMATION
     Dosage: 1 DF, QID
     Route: 048

REACTIONS (2)
  - HEADACHE [None]
  - POISONING [None]
